FAERS Safety Report 9989293 (Version 2)
Quarter: 2014Q1

REPORT INFORMATION
  Report Type: Spontaneous
  Country: AU (occurrence: AU)
  Receive Date: 20140310
  Receipt Date: 20140326
  Transmission Date: 20141002
  Serious: Yes (Other)
  Sender: FDA-Public Use
  Company Number: AU-ASTELLAS-2014US002351

PATIENT
  Sex: 0

DRUGS (2)
  1. TARCEVA [Suspect]
     Indication: PRODUCT USED FOR UNKNOWN INDICATION
     Dosage: 150 MG, UNKNOWN/D
     Route: 065
  2. TARCEVA [Suspect]
     Dosage: 50 MG, UNKNOWN/D
     Route: 065

REACTIONS (2)
  - Pulmonary embolism [Unknown]
  - Gastrointestinal haemorrhage [Unknown]
